FAERS Safety Report 9698281 (Version 1)
Quarter: 2013Q4

REPORT INFORMATION
  Report Type: Spontaneous
  Country: US (occurrence: US)
  Receive Date: 20131120
  Receipt Date: 20131120
  Transmission Date: 20140711
  Serious: No
  Sender: FDA-Public Use
  Company Number: US-ENDO PHARMACEUTICALS INC.-CARI20120002

PATIENT
  Sex: Female

DRUGS (4)
  1. CARISOPRODOL TABLETS 350MG [Suspect]
     Indication: FIBROMYALGIA
  2. CARISOPRODOL TABLETS 350MG [Suspect]
     Indication: MUSCLE SPASMS
  3. CARISOPRODOL TABLETS 350MG [Suspect]
     Indication: BACK PAIN
  4. TEGRETOL [Concomitant]
     Indication: DISTURBANCE IN SEXUAL AROUSAL

REACTIONS (1)
  - Therapeutic response unexpected [Not Recovered/Not Resolved]
